FAERS Safety Report 11091291 (Version 1)
Quarter: 2015Q2

REPORT INFORMATION
  Report Type: Spontaneous
  Country: US (occurrence: None)
  Receive Date: 20150504
  Receipt Date: 20150504
  Transmission Date: 20150821
  Serious: Yes (Disabling)
  Sender: FDA-Public Use
  Company Number: None

PATIENT
  Age: 53 Year
  Sex: Female
  Weight: 118.84 kg

DRUGS (14)
  1. CPAP [Concomitant]
     Active Substance: DEVICE
  2. DIGESTIVE ENZYMES [Concomitant]
     Active Substance: UNSPECIFIED INGREDIENT
  3. VITAMIN C [Concomitant]
     Active Substance: ASCORBIC ACID
  4. LEVOXYL [Concomitant]
     Active Substance: LEVOTHYROXINE SODIUM
  5. MAGNESIUM [Concomitant]
     Active Substance: MAGNESIUM
  6. TURMERIC [Concomitant]
     Active Substance: TURMERIC
  7. ZYRTEC [Suspect]
     Active Substance: CETIRIZINE HYDROCHLORIDE
     Indication: MULTIPLE ALLERGIES
  8. COLBETASOL PROPIONATE [Concomitant]
  9. VITAMIN D [Concomitant]
     Active Substance: CHOLECALCIFEROL
  10. NALTREXONE [Concomitant]
     Active Substance: NALTREXONE
  11. FISH OIL [Concomitant]
     Active Substance: FISH OIL
  12. PROBIOTICS [Concomitant]
     Active Substance: PROBIOTICS NOS
  13. B12/B COMPLEX [Concomitant]
  14. VITAMIN K [Concomitant]
     Active Substance: PHYTONADIONE

REACTIONS (7)
  - Malaise [None]
  - Dizziness [None]
  - Poor quality sleep [None]
  - Asthenia [None]
  - Dyskinesia [None]
  - Agitation [None]
  - Anxiety [None]

NARRATIVE: CASE EVENT DATE: 20140401
